FAERS Safety Report 8572813-6 (Version None)
Quarter: 2012Q3

REPORT INFORMATION
  Report Type: 
  Country: None (occurrence: None)
  Receive Date: 20120806
  Receipt Date: 20120730
  Transmission Date: 20120928
  Serious: Yes (Hospitalization)
  Sender: FDA-Public Use
  Company Number: HK-ROCHE-758182

PATIENT
  Sex: Female
  Weight: 64.3 kg

DRUGS (6)
  1. PACLITAXEL [Suspect]
     Route: 042
  2. AVASTIN [Suspect]
     Route: 042
  3. PACLITAXEL [Suspect]
     Indication: MALIGNANT PERITONEAL NEOPLASM
     Dosage: LAST DOSE PRIOR TO SAE 17/JAN/2011
     Route: 042
     Dates: start: 20110117, end: 20110209
  4. CARBOPLATIN [Suspect]
     Indication: MALIGNANT PERITONEAL NEOPLASM
     Dosage: LAST DOSE PRIOR TO SAE 17/JAN/2011
     Route: 042
     Dates: start: 20110117, end: 20110209
  5. AVASTIN [Suspect]
     Indication: MALIGNANT PERITONEAL NEOPLASM
     Dosage: LAST DOSE PRIOR TO SAE 17/JAN/2011
     Route: 042
     Dates: start: 20110117, end: 20110209
  6. CARBOPLATIN [Suspect]
     Route: 042

REACTIONS (3)
  - ASPARTATE AMINOTRANSFERASE ABNORMAL [None]
  - BLOOD ALKALINE PHOSPHATASE ABNORMAL [None]
  - ALANINE AMINOTRANSFERASE ABNORMAL [None]
